FAERS Safety Report 5946191-2 (Version None)
Quarter: 2008Q4

REPORT INFORMATION
  Report Type: 
  Country: None (occurrence: None)
  Receive Date: 20081106
  Receipt Date: 20081106
  Transmission Date: 20090506
  Serious: Yes (Life-Threatening, Other)
  Sender: FDA-Public Use
  Company Number: None

PATIENT
  Age: 65 Year
  Sex: Male
  Weight: 187 kg

DRUGS (1)
  1. VFEND [Suspect]
     Indication: ANTI-INFECTIVE THERAPY
     Dosage: 350 MG EVERY 12 HOURS IV
     Route: 042
     Dates: start: 20080605, end: 20080607

REACTIONS (1)
  - LEUKOPENIA [None]
